FAERS Safety Report 11173761 (Version 1)
Quarter: 2015Q2

REPORT INFORMATION
  Report Type: Spontaneous
  Country: US (occurrence: US)
  Receive Date: 20150609
  Receipt Date: 20150609
  Transmission Date: 20150821
  Serious: Yes (Hospitalization, Other)
  Sender: FDA-Public Use
  Company Number: US-ASTRAZENECA-2015SE54421

PATIENT
  Age: 953 Month
  Sex: Female

DRUGS (1)
  1. SYMBICORT [Suspect]
     Active Substance: BUDESONIDE\FORMOTEROL FUMARATE DIHYDRATE
     Indication: BRONCHITIS
     Dosage: 160/4.5 MCG 120 INHALATIONS BID
     Route: 055
     Dates: start: 2011

REACTIONS (9)
  - Thyroid disorder [Unknown]
  - Intentional product misuse [Unknown]
  - Fall [Unknown]
  - Mycotic allergy [Unknown]
  - Pleural effusion [Unknown]
  - Productive cough [Unknown]
  - Dysphonia [Unknown]
  - Joint injury [Unknown]
  - Dyspnoea [Unknown]

NARRATIVE: CASE EVENT DATE: 201505
